FAERS Safety Report 5157440-5 (Version None)
Quarter: 2006Q4

REPORT INFORMATION
  Report Type: 
  Country: None (occurrence: None)
  Receive Date: 20061127
  Receipt Date: 20061114
  Transmission Date: 20070319
  Serious: No
  Sender: FDA-Public Use
  Company Number: BE-ELI_LILLY_AND_COMPANY-BE200611002854

PATIENT
  Sex: Female

DRUGS (5)
  1. CYMBALTA [Suspect]
     Indication: DEPRESSION
     Dosage: 60 MG, DAILY (1/D)
     Route: 048
     Dates: start: 20060921
  2. SULPIRIDE [Concomitant]
     Indication: DEPRESSION
  3. BETASERC                                /NET/ [Concomitant]
     Indication: DIZZINESS
  4. REGULTON [Concomitant]
     Indication: HYPOTENSION
  5. RIVOTRIL                                /NOR/ [Concomitant]
     Indication: INSOMNIA

REACTIONS (1)
  - ALANINE AMINOTRANSFERASE INCREASED [None]
